FAERS Safety Report 23468128 (Version 2)
Quarter: 2024Q1

REPORT INFORMATION
  Report Type: Spontaneous
  Country: US (occurrence: US)
  Receive Date: 20240201
  Receipt Date: 20240214
  Transmission Date: 20240409
  Serious: No
  Sender: FDA-Public Use
  Company Number: US-BIOGEN-2024BI01246930

PATIENT
  Sex: Female

DRUGS (14)
  1. SPINRAZA [Suspect]
     Active Substance: NUSINERSEN
     Indication: Spinal muscular atrophy
     Dosage: LOADING DOSE
     Route: 050
  2. SPINRAZA [Suspect]
     Active Substance: NUSINERSEN
     Dosage: LOADING DOSE
     Route: 050
  3. SPINRAZA [Suspect]
     Active Substance: NUSINERSEN
     Dosage: LOADING DOSE
     Route: 050
  4. SPINRAZA [Suspect]
     Active Substance: NUSINERSEN
     Dosage: LOADING DOSE
     Route: 050
  5. SPINRAZA [Suspect]
     Active Substance: NUSINERSEN
     Dosage: MAINTENANCE DOSE
     Route: 050
  6. LIORESAL [Concomitant]
     Active Substance: BACLOFEN
     Indication: Product used for unknown indication
     Dosage: TAKE 0.5 TAB BY MOUTH EVERY NIGHT AT BED TIME
     Route: 050
     Dates: start: 20221123
  7. ALBUTEROL [Concomitant]
     Active Substance: ALBUTEROL
     Indication: Product used for unknown indication
     Dosage: INHALE 1 TO 2 PUFFS EVERY 6 HOURS AS NEEDED
     Route: 050
     Dates: start: 20231031
  8. TESSALON [Concomitant]
     Active Substance: BENZONATATE
     Indication: Cough
     Dosage: TAKE 1 CAPSULE MOTH EVERY 8 HOURS AS NEEDED
     Route: 050
     Dates: start: 20231031
  9. VITAMIN D3 [Concomitant]
     Active Substance: CHOLECALCIFEROL
     Indication: Product used for unknown indication
     Dosage: TAKE 1 CAPSULE BY MOUTH ONCE PER WEEK
     Route: 050
     Dates: start: 20231214
  10. TEMOVATE [Concomitant]
     Active Substance: CLOBETASOL PROPIONATE
     Indication: Product used for unknown indication
     Dosage: PLACE 1 APPLICATION TOPICALLY TWO TIMES PER DAY (0.05%)
     Route: 050
     Dates: start: 20230628
  11. FLEXERIL [Concomitant]
     Active Substance: CYCLOBENZAPRINE HYDROCHLORIDE
     Indication: Product used for unknown indication
     Dosage: 3 TIMES PER DAY AS NEEDED
     Route: 050
     Dates: start: 20230130
  12. JUBLIA [Concomitant]
     Active Substance: EFINACONAZOLE
     Indication: Product used for unknown indication
     Route: 050
     Dates: start: 20230726
  13. KETOCONAZOLE [Concomitant]
     Active Substance: KETOCONAZOLE
     Indication: Product used for unknown indication
     Dosage: PLACE ONE APPLICATION TOPICALLY EVERY 3 DAYS
     Route: 050
     Dates: start: 20230620
  14. LIDOCAINE [Concomitant]
     Active Substance: LIDOCAINE
     Indication: Product used for unknown indication
     Dosage: APPLY ONE PATCH TO SKIN ONCE PER DAY (5% EX PATCH)
     Route: 050
     Dates: start: 20221216

REACTIONS (10)
  - Drug ineffective [Unknown]
  - Gait disturbance [Unknown]
  - Mobility decreased [Unknown]
  - Tendon rupture [Unknown]
  - Middle insomnia [Unknown]
  - Hypoaesthesia [Unknown]
  - Brain fog [Unknown]
  - Dizziness [Unknown]
  - Fall [Unknown]
  - Back pain [Unknown]
